FAERS Safety Report 14972255 (Version 3)
Quarter: 2019Q1

REPORT INFORMATION
  Report Type: Spontaneous
  Country: US (occurrence: US)
  Receive Date: 20180605
  Receipt Date: 20190122
  Transmission Date: 20190417
  Serious: Yes (Other)
  Sender: FDA-Public Use
  Company Number: US-MALLINCKRODT-T201802317

PATIENT
  Sex: Male

DRUGS (2)
  1. OXYCODONE [Suspect]
     Active Substance: OXYCODONE
     Dosage: 30 MG, QID (4 TIMES A DAY)
     Route: 048
     Dates: start: 20181006
  2. OXYCODONE [Suspect]
     Active Substance: OXYCODONE
     Indication: PAIN
     Dosage: 30 MG, QID (4 TIMES DAILY)
     Route: 048
     Dates: start: 201711, end: 20181005

REACTIONS (11)
  - Suicidal ideation [Recovered/Resolved]
  - Emotional distress [Unknown]
  - Back pain [Not Recovered/Not Resolved]
  - Withdrawal syndrome [Unknown]
  - Memory impairment [Not Recovered/Not Resolved]
  - Euphoric mood [Unknown]
  - Migraine [Unknown]
  - Drug ineffective [Not Recovered/Not Resolved]
  - Seizure [Not Recovered/Not Resolved]
  - Gait inability [Unknown]
  - Therapeutic response unexpected [Unknown]

NARRATIVE: CASE EVENT DATE: 2017
